FAERS Safety Report 6849830-7 (Version None)
Quarter: 2010Q3

REPORT INFORMATION
  Report Type: 
  Country: None (occurrence: None)
  Receive Date: 20100716
  Receipt Date: 20071117
  Transmission Date: 20110219
  Serious: No
  Sender: FDA-Public Use
  Company Number: US-PFIZER INC-2007083495

PATIENT
  Sex: Female
  Weight: 61.4 kg

DRUGS (3)
  1. CHANTIX [Suspect]
     Indication: SMOKING CESSATION THERAPY
     Dates: start: 20070701
  2. CLOMIPHENE CITRATE [Suspect]
  3. ZOLOFT [Concomitant]

REACTIONS (1)
  - MENSTRUATION IRREGULAR [None]
